FAERS Safety Report 4515262-X (Version None)
Quarter: 2004Q4

REPORT INFORMATION
  Report Type: 
  Country: None (occurrence: None)
  Receive Date: 20041130
  Receipt Date: 20041130
  Transmission Date: 20050328
  Serious: Yes (Life-Threatening, Hospitalization, Disabling)
  Sender: FDA-Public Use
  Company Number: None

PATIENT
  Age: 63 Year
  Sex: Male
  Weight: 88.4514 kg

DRUGS (1)
  1. VIOXX [Suspect]
     Dosage: DAILY
     Dates: start: 19990920, end: 20041020

REACTIONS (1)
  - MYOCARDIAL INFARCTION [None]
